FAERS Safety Report 7679314-8 (Version None)
Quarter: 2011Q3

REPORT INFORMATION
  Report Type: 
  Country: None (occurrence: None)
  Receive Date: 20110809
  Receipt Date: 20110729
  Transmission Date: 20111222
  Serious: Yes (Other)
  Sender: FDA-Public Use
  Company Number: 2011SP035946

PATIENT
  Sex: Male

DRUGS (2)
  1. PEG-INTRON [Suspect]
     Indication: HEPATITIS C
     Dates: start: 20110325
  2. RIBAVIRIN [Suspect]
     Indication: HEPATITIS C
     Dates: start: 20110325

REACTIONS (2)
  - SKIN CANCER [None]
  - INJECTION SITE ERYTHEMA [None]
